FAERS Safety Report 6524451-4 (Version None)
Quarter: 2010Q1

REPORT INFORMATION
  Report Type: 
  Country: None (occurrence: None)
  Receive Date: 20100104
  Receipt Date: 20091204
  Transmission Date: 20100710
  Serious: No
  Sender: FDA-Public Use
  Company Number: US-BAYER-200917437BCC

PATIENT
  Age: 42 Year
  Sex: Female
  Weight: 59 kg

DRUGS (1)
  1. UNKNOWN MIDOL [Suspect]
     Indication: DYSMENORRHOEA
     Route: 048

REACTIONS (2)
  - HYPERSENSITIVITY [None]
  - URTICARIA [None]
